FAERS Safety Report 10401886 (Version 1)
Quarter: 2014Q3

REPORT INFORMATION
  Report Type: Spontaneous
  Country: US (occurrence: None)
  Receive Date: 20140820
  Receipt Date: 20140820
  Transmission Date: 20150326
  Serious: Yes (Death, Life-Threatening, Hospitalization, Disabling, Other)
  Sender: FDA-Public Use
  Company Number: None

PATIENT
  Age: 35 Year
  Sex: Male
  Weight: 136.08 kg

DRUGS (11)
  1. MEDICAL MARIJUANA [Concomitant]
     Active Substance: CANNABIS SATIVA SUBSP. INDICA TOP
  2. PROBIOTIC [Concomitant]
     Active Substance: PROBIOTICS NOS
  3. SEROQUEL XR [Suspect]
     Active Substance: QUETIAPINE FUMARATE
     Indication: INSOMNIA
     Dosage: 300 MG,  1 EVERY NIGHT, 1 TIME DAILY, BY MOUTH
     Route: 048
     Dates: start: 201301, end: 201310
  4. SEROQUEL XR [Suspect]
     Active Substance: QUETIAPINE FUMARATE
     Indication: OFF LABEL USE
     Dosage: 300 MG,  1 EVERY NIGHT, 1 TIME DAILY, BY MOUTH
     Route: 048
     Dates: start: 201301, end: 201310
  5. MULTIVITAMIN [Concomitant]
     Active Substance: VITAMINS
  6. SEROQUEL XR [Suspect]
     Active Substance: QUETIAPINE FUMARATE
     Indication: POST-TRAUMATIC STRESS DISORDER
     Dosage: 300 MG,  1 EVERY NIGHT, 1 TIME DAILY, BY MOUTH
     Route: 048
     Dates: start: 201301, end: 201310
  7. PRILOSEC [Concomitant]
     Active Substance: OMEPRAZOLE MAGNESIUM
  8. LASIX [Concomitant]
     Active Substance: FUROSEMIDE
  9. MAGNESIUM [Concomitant]
     Active Substance: MAGNESIUM
  10. POTASSIUM [Concomitant]
     Active Substance: POTASSIUM
  11. PROPRANALOL [Concomitant]

REACTIONS (8)
  - Right ventricular failure [None]
  - Weight increased [None]
  - Hepatic steatosis [None]
  - Pulmonary hypertension [None]
  - Gallbladder disorder [None]
  - Hyperhidrosis [None]
  - Tachycardia [None]
  - Off label use [None]

NARRATIVE: CASE EVENT DATE: 20140614
